FAERS Safety Report 9786234 (Version 2)
Quarter: 2014Q1

REPORT INFORMATION
  Report Type: Spontaneous
  Country: US (occurrence: US)
  Receive Date: 20131227
  Receipt Date: 20140117
  Transmission Date: 20141002
  Serious: No
  Sender: FDA-Public Use
  Company Number: US-PFIZER INC-2013370974

PATIENT
  Age: 70 Year
  Sex: Male
  Weight: 71.2 kg

DRUGS (2)
  1. EFFEXOR [Suspect]
     Indication: ANXIETY
     Dosage: UNK
     Dates: start: 2013
  2. XANAX [Concomitant]
     Indication: NERVOUSNESS
     Dosage: 37.5 MG, 2X/DAY

REACTIONS (4)
  - Off label use [Not Recovered/Not Resolved]
  - Drug ineffective for unapproved indication [Not Recovered/Not Resolved]
  - Mental disorder [Recovered/Resolved]
  - Feeling jittery [Not Recovered/Not Resolved]
